FAERS Safety Report 24914961 (Version 4)
Quarter: 2025Q3

REPORT INFORMATION
  Report Type: Report from Study
  Country: US (occurrence: US)
  Receive Date: 20250203
  Receipt Date: 20250708
  Transmission Date: 20251020
  Serious: No
  Sender: SUNOVION
  Company Number: US-SUMITOMO PHARMA SWITZERLAND GMBH-2025SPA000930

PATIENT

DRUGS (3)
  1. ORGOVYX [Suspect]
     Active Substance: RELUGOLIX
     Indication: Prostate cancer
     Route: 048
     Dates: start: 20250111, end: 20250111
  2. ORGOVYX [Suspect]
     Active Substance: RELUGOLIX
     Dosage: 120 MG, QD
     Route: 048
     Dates: start: 20250112, end: 20250614
  3. BYSTOLIC [Suspect]
     Active Substance: NEBIVOLOL HYDROCHLORIDE
     Route: 065

REACTIONS (18)
  - Cardiac disorder [Unknown]
  - Heart rate decreased [Unknown]
  - Nocturia [Unknown]
  - Brain fog [Unknown]
  - Palpitations [Unknown]
  - Emotional disorder [Unknown]
  - Pain [Recovered/Resolved]
  - Drug interaction [Unknown]
  - General physical condition abnormal [Unknown]
  - Sleep disorder [Unknown]
  - Migraine [Not Recovered/Not Resolved]
  - Muscular weakness [Unknown]
  - Erectile dysfunction [Unknown]
  - Dizziness [Unknown]
  - Depression [Unknown]
  - Fatigue [Unknown]
  - Hot flush [Unknown]
  - Insomnia [Unknown]
